FAERS Safety Report 5207156-1 (Version None)
Quarter: 2007Q1

REPORT INFORMATION
  Report Type: 
  Country: None (occurrence: None)
  Receive Date: 20070112
  Receipt Date: 20070103
  Transmission Date: 20070707
  Serious: Yes (Hospitalization)
  Sender: FDA-Public Use
  Company Number: GB-ROCHE-477694

PATIENT
  Age: 71 Year
  Sex: Female

DRUGS (7)
  1. NAPROXEN [Suspect]
     Indication: RHEUMATOID ARTHRITIS
     Route: 048
     Dates: end: 20060821
  2. ALENDRONATE SODIUM [Suspect]
     Indication: OSTEOPOROSIS
     Route: 048
     Dates: end: 20060821
  3. COMBIVENT [Concomitant]
     Route: 055
  4. OMEPRAZOLE [Concomitant]
     Route: 048
  5. VENTOLIN [Concomitant]
     Route: 055
  6. SERETIDE [Concomitant]
     Route: 055
  7. SULFASALAZINE [Concomitant]
     Indication: RHEUMATOID ARTHRITIS
     Route: 048

REACTIONS (4)
  - DYSPHAGIA [None]
  - OESOPHAGEAL STENOSIS [None]
  - OESOPHAGITIS [None]
  - ULCER [None]
